FAERS Safety Report 4659514-1 (Version None)
Quarter: 2005Q2

REPORT INFORMATION
  Report Type: 
  Country: None (occurrence: None)
  Receive Date: 20050511
  Receipt Date: 20050425
  Transmission Date: 20051028
  Serious: Yes (Other)
  Sender: FDA-Public Use
  Company Number: 2005-DE-01567GD

PATIENT
  Age: 51 Year
  Sex: Female

DRUGS (5)
  1. MORPHINE SULFATE [Suspect]
     Indication: OBSESSIVE-COMPULSIVE DISORDER
     Dosage: 30 MG, ONCE-WEEKLY, PO
     Route: 048
  2. TRAZODONE (TRAZODONE HYDROCHLORIDE) [Concomitant]
  3. SSRI (SSRI) [Concomitant]
  4. BENZODIAZEPINE (BENZODIAZEPINE DERIVATIVES) [Concomitant]
  5. GABAPENTIN [Concomitant]

REACTIONS (5)
  - ABDOMINAL DISCOMFORT [None]
  - ABDOMINAL PAIN [None]
  - CHEST PAIN [None]
  - DRUG INEFFECTIVE [None]
  - HYPERHIDROSIS [None]
